FAERS Safety Report 5918022-8 (Version None)
Quarter: 2008Q4

REPORT INFORMATION
  Report Type: 
  Country: None (occurrence: None)
  Receive Date: 20081014
  Receipt Date: 20081002
  Transmission Date: 20090506
  Serious: Yes (Disabling)
  Sender: FDA-Public Use
  Company Number: AU-PFIZER INC-2008074222

PATIENT
  Sex: Female

DRUGS (1)
  1. CHANTIX [Suspect]
     Indication: SMOKING CESSATION THERAPY
     Route: 048
     Dates: start: 20080801, end: 20080801

REACTIONS (10)
  - ABNORMAL DREAMS [None]
  - DIZZINESS [None]
  - DRUG INTOLERANCE [None]
  - FATIGUE [None]
  - HOT FLUSH [None]
  - INCREASED APPETITE [None]
  - MALAISE [None]
  - MOOD SWINGS [None]
  - PALPITATIONS [None]
  - VOMITING [None]
